FAERS Safety Report 23143644 (Version 1)
Quarter: 2023Q4

REPORT INFORMATION
  Report Type: Spontaneous
  Country: US (occurrence: US)
  Receive Date: 20231103
  Receipt Date: 20231103
  Transmission Date: 20240109
  Serious: Yes (Other)
  Sender: FDA-Public Use
  Company Number: US-MYLANLABS-2023M1116409

PATIENT
  Age: 58 Year
  Sex: Male

DRUGS (4)
  1. PREDNISONE [Suspect]
     Active Substance: PREDNISONE
     Indication: Eosinophilic fasciitis
     Dosage: 60 MILLIGRAM, QD
     Route: 065
  2. METHOTREXATE [Suspect]
     Active Substance: METHOTREXATE
     Indication: Eosinophilic fasciitis
     Dosage: 25 MILLIGRAM, QW
     Route: 065
  3. MYCOPHENOLATE MOFETIL [Suspect]
     Active Substance: MYCOPHENOLATE MOFETIL
     Indication: Eosinophilic fasciitis
     Dosage: 1500 MILLIGRAM, BID
     Route: 065
  4. HUMAN IMMUNOGLOBULIN G [Suspect]
     Active Substance: HUMAN IMMUNOGLOBULIN G
     Indication: Eosinophilic fasciitis
     Dosage: 2000 MILLIGRAM/KILOGRAM, 4XW
     Route: 042

REACTIONS (1)
  - Drug ineffective [Unknown]
